FAERS Safety Report 5964603-5 (Version None)
Quarter: 2008Q4

REPORT INFORMATION
  Report Type: 
  Country: None (occurrence: None)
  Receive Date: 20081120
  Receipt Date: 20081118
  Transmission Date: 20090506
  Serious: Yes (Hospitalization)
  Sender: FDA-Public Use
  Company Number: SP02125

PATIENT
  Age: 75 Year
  Sex: Male

DRUGS (15)
  1. VISICOL [Suspect]
     Indication: COLONOSCOPY
     Dosage: (50 GM), ORAL
     Route: 048
     Dates: start: 20081031, end: 20081031
  2. SODIUM PICOSULFATE [Suspect]
     Dates: start: 20081031, end: 20081031
  3. MOSAPRIDE CITRATE [Concomitant]
  4. NIZATIDINE [Concomitant]
  5. TEPRENONE [Concomitant]
  6. MAGNESIUM OXIDE [Concomitant]
  7. DIMETICONE [Concomitant]
  8. DAI-KENCHU-TO [Concomitant]
  9. CILOSTAZOL [Concomitant]
  10. ISOSORBIDE MONONITRATE [Concomitant]
  11. AZELNIDIPINE [Concomitant]
  12. MEXILETINE HYDROCHLORIDE [Concomitant]
  13. CARVEDILOL [Concomitant]
  14. LOSARTAN POTASSIUM [Concomitant]
  15. PAROXETINE HCL [Concomitant]

REACTIONS (2)
  - HAEMATOCHEZIA [None]
  - INTESTINAL ISCHAEMIA [None]
